FAERS Safety Report 4643899-6 (Version None)
Quarter: 2005Q2

REPORT INFORMATION
  Report Type: 
  Country: None (occurrence: None)
  Receive Date: 20050425
  Receipt Date: 20041123
  Transmission Date: 20051028
  Serious: Yes (Hospitalization)
  Sender: FDA-Public Use
  Company Number: BE-BRISTOL-MYERS SQUIBB COMPANY-12773172

PATIENT
  Age: 56 Year
  Sex: Male

DRUGS (6)
  1. ATAZANAVIR [Suspect]
     Indication: HIV INFECTION
     Dosage: THERAPY INTERRUPTED ON 18-NOV-2004
     Route: 048
     Dates: start: 20030319, end: 20041118
  2. NORVIR [Concomitant]
  3. AGENERASE [Concomitant]
     Dates: start: 20030319
  4. EPIVIR [Concomitant]
     Dates: start: 20030319
  5. VIREAD [Concomitant]
     Dates: start: 20030319
  6. TRYPTIZOL [Concomitant]
     Route: 048
     Dates: start: 19990501

REACTIONS (1)
  - PANCREATITIS [None]
